FAERS Safety Report 8835820 (Version 1)
Quarter: 2012Q4

REPORT INFORMATION
  Report Type: 
  Country: GB (occurrence: GB)
  Receive Date: 20121011
  Receipt Date: 20121011
  Transmission Date: 20130627
  Serious: Yes (Other)
  Sender: FDA-Public Use
  Company Number: GB-GLAXOSMITHKLINE-B0835377A

PATIENT
  Age: 39 Year
  Sex: Female
  Weight: 67 kg

DRUGS (1)
  1. FLIXONASE [Suspect]
     Indication: SINUSITIS
     Dosage: 400MCG Per day
     Route: 045
     Dates: start: 20120921, end: 20120924

REACTIONS (1)
  - Insomnia [Recovered/Resolved]
